FAERS Safety Report 19685097 (Version 1)
Quarter: 2021Q3

REPORT INFORMATION
  Report Type: Spontaneous
  Country: US (occurrence: US)
  Receive Date: 20210811
  Receipt Date: 20210811
  Transmission Date: 20211014
  Serious: Yes (Other)
  Sender: FDA-Public Use
  Company Number: US-SK LIFE SCIENCE, INC-SKPVG-2020-000547

PATIENT

DRUGS (8)
  1. DILANTIN [Concomitant]
     Active Substance: PHENYTOIN
     Dosage: 400 MILLIGRAM
     Route: 065
  2. KEPPRA [Concomitant]
     Active Substance: LEVETIRACETAM
     Indication: PRODUCT USED FOR UNKNOWN INDICATION
     Dosage: 3000 MILLIGRAM
     Route: 065
  3. TOPIRAMATE. [Concomitant]
     Active Substance: TOPIRAMATE
     Indication: PRODUCT USED FOR UNKNOWN INDICATION
     Dosage: 200 MILLIGRAM
     Route: 065
  4. DILANTIN [Concomitant]
     Active Substance: PHENYTOIN
     Indication: PRODUCT USED FOR UNKNOWN INDICATION
     Dosage: 800 MILLIGRAM
     Route: 065
  5. DILANTIN [Concomitant]
     Active Substance: PHENYTOIN
     Dosage: 800 MILLIGRAM
     Route: 065
  6. XCOPRI [Suspect]
     Active Substance: CENOBAMATE
     Indication: SEIZURE
     Dosage: 12.5 MILLIGRAM, QD, 1 TABLET
     Route: 048
     Dates: start: 20201019, end: 20201023
  7. COMPAZINE                          /00013302/ [Concomitant]
     Active Substance: PROCHLORPERAZINE EDISYLATE
     Indication: MIGRAINE
     Dosage: UNK
     Route: 065
  8. NAPROXEN. [Concomitant]
     Active Substance: NAPROXEN
     Indication: MIGRAINE
     Route: 065

REACTIONS (10)
  - Petit mal epilepsy [Recovering/Resolving]
  - Respiratory arrest [Unknown]
  - Tunnel vision [Unknown]
  - Skin burning sensation [Unknown]
  - Strabismus [Unknown]
  - Eye movement disorder [Unknown]
  - Feeling abnormal [Unknown]
  - Dizziness [Unknown]
  - Generalised tonic-clonic seizure [Recovering/Resolving]
  - Eye irritation [Unknown]

NARRATIVE: CASE EVENT DATE: 20201019
